FAERS Safety Report 19312892 (Version 1)
Quarter: 2021Q2

REPORT INFORMATION
  Report Type: Spontaneous
  Country: US (occurrence: US)
  Receive Date: 20210526
  Receipt Date: 20210526
  Transmission Date: 20210717
  Serious: Yes (Other)
  Sender: FDA-Public Use
  Company Number: None

PATIENT
  Age: 72 Year
  Sex: Female
  Weight: 67.5 kg

DRUGS (1)
  1. VIIBRYD [Suspect]
     Active Substance: VILAZODONE HYDROCHLORIDE
     Indication: DEPRESSION
     Dates: start: 20201203, end: 20201214

REACTIONS (8)
  - Dry mouth [None]
  - Paranasal sinus hyposecretion [None]
  - Anosmia [None]
  - Nerve injury [None]
  - Dysgeusia [None]
  - Nervousness [None]
  - Ageusia [None]
  - Drug intolerance [None]

NARRATIVE: CASE EVENT DATE: 20201214
